FAERS Safety Report 9270183 (Version 1)
Quarter: 2013Q2

REPORT INFORMATION
  Report Type: Spontaneous
  Country: JP (occurrence: JP)
  Receive Date: 20130503
  Receipt Date: 20130503
  Transmission Date: 20140414
  Serious: Yes (Other)
  Sender: FDA-Public Use
  Company Number: JP-JNJFOC-20130415953

PATIENT
  Sex: Male

DRUGS (1)
  1. FINIBAX [Suspect]
     Indication: SEPSIS
     Route: 041
     Dates: start: 20130408, end: 20130413

REACTIONS (1)
  - White blood cell count decreased [Recovered/Resolved]
